FAERS Safety Report 5600607-X (Version None)
Quarter: 2008Q1

REPORT INFORMATION
  Report Type: 
  Country: None (occurrence: None)
  Receive Date: 20080123
  Receipt Date: 20080111
  Transmission Date: 20080703
  Serious: Yes (Hospitalization)
  Sender: FDA-Public Use
  Company Number: FR-ELI_LILLY_AND_COMPANY-FR200801002431

PATIENT
  Age: 60 Year
  Sex: Female

DRUGS (1)
  1. OPTRUMA [Suspect]
     Dosage: 60 MG, DAILY (1/D)
     Route: 048
     Dates: start: 20070901, end: 20071101

REACTIONS (1)
  - CORONARY ARTERY STENOSIS [None]
